FAERS Safety Report 16033039 (Version 1)
Quarter: 2019Q1

REPORT INFORMATION
  Report Type: Spontaneous
  Country: US (occurrence: US)
  Receive Date: 20190305
  Receipt Date: 20190305
  Transmission Date: 20190418
  Serious: No
  Sender: FDA-Public Use
  Company Number: US-IMPAX LABORATORIES, LLC-2018-IPXL-02227

PATIENT
  Age: 63 Year
  Sex: Male
  Weight: 74 kg

DRUGS (4)
  1. CLONAZEPAM. [Concomitant]
     Active Substance: CLONAZEPAM
     Indication: ANXIETY
     Dosage: 3 DF, 0.5 MG, 1 /DAY
     Route: 065
  2. BUPROPION. [Concomitant]
     Active Substance: BUPROPION
     Indication: DEPRESSION
     Dosage: 2 DF, 75MG, 2 /DAY(ONE IN THE MORNING AND ONE AT NIGHT)
     Route: 065
  3. MIRTAZAPINE. [Concomitant]
     Active Substance: MIRTAZAPINE
     Indication: SLEEP DISORDER
     Dosage: 30 MG, 1 PILLS, ONCE DAILY
     Route: 065
  4. RYTARY [Suspect]
     Active Substance: CARBIDOPA\LEVODOPA
     Indication: PARKINSON^S DISEASE
     Dosage: 36.25/145 MG, 3 CAPSULES THREE TIMES A DAY (TID)
     Route: 048
     Dates: start: 20180619

REACTIONS (4)
  - Musculoskeletal stiffness [Unknown]
  - Labelled drug-food interaction medication error [Unknown]
  - Drug ineffective [Unknown]
  - Drug effect variable [Unknown]

NARRATIVE: CASE EVENT DATE: 201806
